FAERS Safety Report 8438564-3 (Version None)
Quarter: 2012Q2

REPORT INFORMATION
  Report Type: 
  Country: None (occurrence: None)
  Receive Date: 20120615
  Receipt Date: 20120604
  Transmission Date: 20120825
  Serious: Yes (Other)
  Sender: FDA-Public Use
  Company Number: CH-BRISTOL-MYERS SQUIBB COMPANY-16662819

PATIENT
  Age: 46 Year
  Sex: Female

DRUGS (2)
  1. TOCILIZUMAB [Suspect]
     Indication: CASTLEMAN'S DISEASE
     Dosage: FOR 8 MONTHS
  2. TRIAMCINOLONE ACETONIDE [Suspect]
     Indication: CASTLEMAN'S DISEASE
     Route: 030

REACTIONS (2)
  - THROMBOSIS [None]
  - PERIPHERAL ISCHAEMIA [None]
